FAERS Safety Report 21650935 (Version 3)
Quarter: 2023Q2

REPORT INFORMATION
  Report Type: Spontaneous
  Country: US (occurrence: US)
  Receive Date: 20221128
  Receipt Date: 20230406
  Transmission Date: 20230721
  Serious: Yes (Other)
  Sender: FDA-Public Use
  Company Number: US-BIOVITRUM-2022US13669

PATIENT
  Age: 11 Year
  Sex: Female

DRUGS (2)
  1. KINERET [Suspect]
     Active Substance: ANAKINRA
     Indication: Mucopolysaccharidosis III
     Dosage: DAILY
     Dates: start: 202210
  2. KINERET [Suspect]
     Active Substance: ANAKINRA
     Route: 058
     Dates: start: 20221028

REACTIONS (8)
  - Seizure [Unknown]
  - Intentional product misuse [Unknown]
  - Fall [Recovering/Resolving]
  - Product dose omission issue [Unknown]
  - Liver function test increased [Unknown]
  - Arthropathy [Unknown]
  - Ankle deformity [Unknown]
  - Cardiovascular disorder [Unknown]

NARRATIVE: CASE EVENT DATE: 20221001
